FAERS Safety Report 5332681-2 (Version None)
Quarter: 2007Q2

REPORT INFORMATION
  Report Type: 
  Country: None (occurrence: None)
  Receive Date: 20070523
  Receipt Date: 20070216
  Transmission Date: 20071010
  Serious: Yes (Death)
  Sender: FDA-Public Use
  Company Number: FR-PFIZER INC-2007013402

PATIENT
  Sex: Female
  Weight: 78 kg

DRUGS (1)
  1. DOSTINEX [Suspect]
     Indication: PROLACTINOMA
     Dosage: FREQ:DAILY: EVERY WEEK

REACTIONS (1)
  - INTRA-UTERINE DEATH [None]
